FAERS Safety Report 9655856 (Version 4)
Quarter: 2014Q3

REPORT INFORMATION
  Report Type: Spontaneous
  Country: US (occurrence: US)
  Receive Date: 20131030
  Receipt Date: 20140918
  Transmission Date: 20150326
  Serious: Yes (Life-Threatening, Hospitalization, Other)
  Sender: FDA-Public Use
  Company Number: US-009507513-1310USA011554

PATIENT
  Sex: Female
  Weight: 79.37 kg

DRUGS (2)
  1. NUVARING [Suspect]
     Active Substance: ETHINYL ESTRADIOL\ETONOGESTREL
     Indication: MENORRHAGIA
     Dosage: THREE WEEKS IN THE VAGINA AND ONE WEEK OUT
     Route: 067
     Dates: start: 20130729, end: 20130914
  2. MAXALT-MLT [Concomitant]
     Active Substance: RIZATRIPTAN BENZOATE
     Indication: MIGRAINE
     Dosage: UNK, PRN

REACTIONS (14)
  - Surgery [Unknown]
  - Pulmonary embolism [Recovered/Resolved]
  - Off label use [Unknown]
  - Substance use [Unknown]
  - Breast prosthesis user [Unknown]
  - Pulmonary mass [Unknown]
  - Cholecystectomy [Unknown]
  - Complex regional pain syndrome [Unknown]
  - Adenomyosis [Unknown]
  - Pleural fibrosis [Unknown]
  - Back pain [Unknown]
  - Hypokalaemia [Recovered/Resolved]
  - Muscle spasms [Unknown]
  - Embolism venous [Unknown]

NARRATIVE: CASE EVENT DATE: 2013
